FAERS Safety Report 20536794 (Version 1)
Quarter: 2022Q1

REPORT INFORMATION
  Report Type: Report from Study
  Country: JP (occurrence: JP)
  Receive Date: 20220302
  Receipt Date: 20220302
  Transmission Date: 20220423
  Serious: Yes (Hospitalization)
  Sender: FDA-Public Use
  Company Number: JP-JNJFOC-20210908914

PATIENT
  Age: 68 Year
  Sex: Male

DRUGS (13)
  1. ABIRATERONE ACETATE [Suspect]
     Active Substance: ABIRATERONE ACETATE
     Indication: Hormone-dependent prostate cancer
     Route: 048
     Dates: start: 20210804, end: 20210807
  2. ABIRATERONE ACETATE [Suspect]
     Active Substance: ABIRATERONE ACETATE
     Route: 048
     Dates: start: 20210811, end: 20210814
  3. ABIRATERONE ACETATE [Suspect]
     Active Substance: ABIRATERONE ACETATE
     Route: 048
     Dates: start: 20210910, end: 20210910
  4. CAPIVASERTIB [Suspect]
     Active Substance: CAPIVASERTIB
     Indication: Hormone-dependent prostate cancer
     Route: 065
     Dates: start: 20210804, end: 20210807
  5. CAPIVASERTIB [Suspect]
     Active Substance: CAPIVASERTIB
     Route: 065
     Dates: start: 20210811, end: 20210814
  6. CAPIVASERTIB [Suspect]
     Active Substance: CAPIVASERTIB
     Route: 065
     Dates: start: 20210816
  7. CARTEOLOL HYDROCHLORIDE [Concomitant]
     Active Substance: CARTEOLOL HYDROCHLORIDE
     Indication: Prophylaxis
     Dosage: 2 % DAILY
     Route: 031
     Dates: start: 2014
  8. PREDNISOLONE [Concomitant]
     Active Substance: PREDNISOLONE
     Indication: Drug therapy
     Route: 048
     Dates: start: 20210804
  9. BILASTINE [Concomitant]
     Active Substance: BILASTINE
     Indication: Product used for unknown indication
     Route: 065
  10. REBAMIPIDE [Concomitant]
     Active Substance: REBAMIPIDE
     Indication: Prophylaxis
     Route: 031
     Dates: start: 2014, end: 20210808
  11. EPINASTINE HYDROCHLORIDE [Concomitant]
     Active Substance: EPINASTINE HYDROCHLORIDE
     Indication: Seasonal allergy
     Route: 031
     Dates: start: 2014, end: 20210808
  12. SILODOSIN [Concomitant]
     Active Substance: SILODOSIN
     Indication: Benign prostatic hyperplasia
     Route: 048
     Dates: start: 20210815, end: 20210816
  13. GOSERELIN ACETATE [Concomitant]
     Active Substance: GOSERELIN ACETATE
     Indication: Hormone-dependent prostate cancer
     Route: 058
     Dates: start: 20210804

REACTIONS (1)
  - Erythema multiforme [Recovered/Resolved]

NARRATIVE: CASE EVENT DATE: 20210815
